FAERS Safety Report 8268364 (Version 3)
Quarter: 2013Q2

REPORT INFORMATION
  Report Type: Report from Study
  Country: DE (occurrence: DE)
  Receive Date: 20111130
  Receipt Date: 20130627
  Transmission Date: 20140414
  Serious: Yes (Hospitalization)
  Sender: FDA-Public Use
  Company Number: DE-MILLENNIUM PHARMACEUTICALS, INC.-2011-05949

PATIENT
  Sex: 0

DRUGS (3)
  1. VELCADE [Suspect]
     Indication: PLASMA CELL MYELOMA
     Dosage: 1.3 MG/M2, CYCLIC
     Route: 042
     Dates: start: 20110816, end: 20111031
  2. CYCLOPHOSPHAMIDE [Concomitant]
     Indication: PLASMA CELL MYELOMA
     Dosage: 1773 MG, QD
     Dates: start: 20110816, end: 20111024
  3. DEXAMETHASONE [Concomitant]
     Indication: PLASMA CELL MYELOMA
     Dosage: 40 MG, QD
     Dates: start: 20110816, end: 20111101

REACTIONS (5)
  - Rash pustular [Recovered/Resolved]
  - Testicular pain [Recovered/Resolved]
  - Pyrexia [Recovered/Resolved]
  - Testicular atrophy [Unknown]
  - Rash [Recovered/Resolved]
